FAERS Safety Report 7266449-7 (Version None)
Quarter: 2011Q1

REPORT INFORMATION
  Report Type: 
  Country: None (occurrence: None)
  Receive Date: 20110131
  Receipt Date: 20110117
  Transmission Date: 20110831
  Serious: Yes (Congenital Anomaly)
  Sender: FDA-Public Use
  Company Number: IT-MYLANLABS-2011S1001545

PATIENT

DRUGS (2)
  1. OMEPRAZOLE [Suspect]
  2. DOMPERIDONE [Suspect]
     Dates: start: 20090713

REACTIONS (2)
  - DRUG EXPOSURE DURING PREGNANCY [None]
  - CLEFT PALATE [None]
